FAERS Safety Report 11771539 (Version 1)
Quarter: 2015Q4

REPORT INFORMATION
  Report Type: Spontaneous
  Country: US (occurrence: None)
  Receive Date: 20151123
  Receipt Date: 20151123
  Transmission Date: 20160304
  Serious: Yes (Disabling)
  Sender: FDA-Public Use
  Company Number: None

PATIENT
  Age: 75 Year
  Sex: Male
  Weight: 83.46 kg

DRUGS (1)
  1. ULTRAM [Suspect]
     Active Substance: TRAMADOL HYDROCHLORIDE
     Indication: BACK PAIN
     Route: 048

REACTIONS (5)
  - Product substitution issue [None]
  - Head discomfort [None]
  - Tinnitus [None]
  - Balance disorder [None]
  - Sleep attacks [None]

NARRATIVE: CASE EVENT DATE: 20150909
